FAERS Safety Report 18005994 (Version 2)
Quarter: 2020Q3

REPORT INFORMATION
  Report Type: Spontaneous
  Country: FR (occurrence: FR)
  Receive Date: 20200710
  Receipt Date: 20200716
  Transmission Date: 20201103
  Serious: Yes (Hospitalization)
  Sender: FDA-Public Use
  Company Number: FR-MYLANLABS-2020M1062610

PATIENT
  Age: 73 Year
  Sex: Female
  Weight: 51 kg

DRUGS (2)
  1. MIRTAZAPIN ?MYLAN? [Suspect]
     Active Substance: MIRTAZAPINE
     Indication: DEPRESSION
     Dosage: 15 MILLIGRAM, QD
     Route: 048
     Dates: start: 20200323, end: 20200522
  2. COVERAM [Suspect]
     Active Substance: AMLODIPINE\PERINDOPRIL
     Indication: HYPERTENSION
     Dosage: 1 DOSAGE FORM, QD
     Route: 048
     Dates: start: 2014, end: 20200519

REACTIONS (3)
  - Hyponatraemia [Recovered/Resolved]
  - Hypersensitivity [Recovered/Resolved]
  - Purpura [Recovered/Resolved]

NARRATIVE: CASE EVENT DATE: 20200519
